FAERS Safety Report 8612014-6 (Version None)
Quarter: 2012Q3

REPORT INFORMATION
  Report Type: 
  Country: None (occurrence: None)
  Receive Date: 20120822
  Receipt Date: 20120815
  Transmission Date: 20120928
  Serious: Yes (Hospitalization)
  Sender: FDA-Public Use
  Company Number: CN-GLAXOSMITHKLINE-B0820292A

PATIENT
  Age: 44 Year
  Sex: Male
  Weight: 45 kg

DRUGS (3)
  1. VALPROATE SODIUM [Concomitant]
     Indication: EPILEPSY
     Dosage: 1TAB TWICE PER DAY
     Route: 048
  2. KEPPRA [Concomitant]
     Indication: EPILEPSY
  3. LAMICTAL [Suspect]
     Indication: EPILEPSY
     Route: 048
     Dates: start: 20120405, end: 20120512

REACTIONS (5)
  - ANAPHYLACTIC REACTION [None]
  - DERMATITIS EXFOLIATIVE [None]
  - DRUG HYPERSENSITIVITY [None]
  - GENERALISED OEDEMA [None]
  - RASH [None]
